FAERS Safety Report 5026325-7 (Version None)
Quarter: 2006Q2

REPORT INFORMATION
  Report Type: 
  Country: None (occurrence: None)
  Receive Date: 20060608
  Receipt Date: 20060529
  Transmission Date: 20061013
  Serious: No
  Sender: FDA-Public Use
  Company Number: AT200603006586

PATIENT
  Age: 67 Year
  Sex: Female

DRUGS (2)
  1. ZYPREXA [Suspect]
     Indication: BIPOLAR DISORDER
     Dosage: 10 MG, DAILY (1/D), ORAL
     Route: 048
     Dates: start: 20050906, end: 20050926
  2. LAMOTRIGINE [Concomitant]

REACTIONS (2)
  - OEDEMA PERIPHERAL [None]
  - TREATMENT NONCOMPLIANCE [None]
